FAERS Safety Report 19281889 (Version 1)
Quarter: 2021Q2

REPORT INFORMATION
  Report Type: Report from Study
  Country: US (occurrence: US)
  Receive Date: 20210520
  Receipt Date: 20210520
  Transmission Date: 20210717
  Serious: Yes (Hospitalization)
  Sender: FDA-Public Use
  Company Number: US-EISAI MEDICAL RESEARCH-EC-2021-092963

PATIENT
  Sex: Female
  Weight: 46.71 kg

DRUGS (5)
  1. UDENYCA [Concomitant]
     Active Substance: PEGFILGRASTIM-CBQV
  2. LENVIMA [Suspect]
     Active Substance: LENVATINIB
     Indication: HEPATIC CANCER
     Dosage: UNKNOWN DOSE AND FREQUENCY
     Route: 048
  3. ZIEXTENZO [Concomitant]
     Active Substance: PEGFILGRASTIM-BMEZ
  4. RETACRIT [Concomitant]
     Active Substance: EPOETIN ALFA-EPBX
  5. ZARXIO [Concomitant]
     Active Substance: FILGRASTIM-SNDZ

REACTIONS (1)
  - Dehydration [Unknown]
